FAERS Safety Report 8663319 (Version 2)
Quarter: 2012Q4

REPORT INFORMATION
  Report Type: 
  Country: US (occurrence: US)
  Receive Date: 20120713
  Receipt Date: 20121015
  Transmission Date: 20130627
  Serious: Yes (Other)
  Sender: FDA-Public Use
  Company Number: PHEH2012US011633

PATIENT
  Age: 76 None
  Sex: Male
  Weight: 92.2 kg

DRUGS (10)
  1. GLEEVEC [Suspect]
     Indication: CHRONIC MYELOID LEUKAEMIA
     Dosage: 400 mg, daily
     Route: 048
     Dates: start: 20010413, end: 20120220
  2. ALLOPURINOL [Concomitant]
     Dosage: 100 mg, UNK
     Route: 048
  3. AMLODIPINE [Concomitant]
     Dosage: 10 mg, UNK
     Route: 048
  4. ARANESP [Concomitant]
     Dosage: 300 ug, UNK
     Route: 058
  5. ENALAPRIL [Concomitant]
     Dosage: 20 mg, UNK
     Route: 048
  6. HYDROCHLOROTHIAZIDE [Concomitant]
     Dosage: 12.5 mg, UNK
     Route: 048
  7. METOPROLOL [Concomitant]
     Dosage: 50 mg, daily
     Route: 048
  8. VITAMIN D3 [Concomitant]
  9. DIURETICS [Concomitant]
  10. ACE INHIBITORS [Concomitant]

REACTIONS (1)
  - Renal injury [Not Recovered/Not Resolved]
